FAERS Safety Report 24802807 (Version 1)
Quarter: 2025Q1

REPORT INFORMATION
  Report Type: Spontaneous
  Country: US (occurrence: US)
  Receive Date: 20250103
  Receipt Date: 20250103
  Transmission Date: 20250408
  Serious: No
  Sender: LEO PHARM
  Company Number: US-LEO Pharma-376480

PATIENT
  Age: 16 Year
  Sex: Male

DRUGS (1)
  1. ADBRY [Suspect]
     Active Substance: TRALOKINUMAB-LDRM
     Indication: Dermatitis atopic
     Dosage: 2 SYRINGES UNDER THE SKIN ON DAY 1; TREATMENT REPORTED AS ONGOING
     Route: 058
     Dates: start: 202412

REACTIONS (3)
  - Eczema [Unknown]
  - Dry skin [Recovered/Resolved]
  - Pain [Unknown]
